FAERS Safety Report 10506971 (Version 2)
Quarter: 2014Q4

REPORT INFORMATION
  Report Type: Spontaneous
  Country: US (occurrence: US)
  Receive Date: 20141009
  Receipt Date: 20141009
  Transmission Date: 20150528
  Serious: Yes (Hospitalization)
  Sender: FDA-Public Use
  Company Number: US-TEVA-482816USA

PATIENT
  Age: 20 Year
  Sex: Female
  Weight: 74.91 kg

DRUGS (1)
  1. JOLESSA [Suspect]
     Active Substance: ETHINYL ESTRADIOL\LEVONORGESTREL
     Indication: MENSTRUATION IRREGULAR
     Dates: start: 2010

REACTIONS (4)
  - Colitis ulcerative [Unknown]
  - Product use issue [Unknown]
  - Dysmenorrhoea [Not Recovered/Not Resolved]
  - Metrorrhagia [Not Recovered/Not Resolved]

NARRATIVE: CASE EVENT DATE: 201403
